FAERS Safety Report 25273490 (Version 2)
Quarter: 2025Q2

REPORT INFORMATION
  Report Type: Spontaneous
  Country: US (occurrence: US)
  Receive Date: 20250506
  Receipt Date: 20250519
  Transmission Date: 20250717
  Serious: Yes (Other)
  Sender: AUROBINDO
  Company Number: US-AUROBINDO-AUR-APL-2025-023063

PATIENT
  Age: 69 Year
  Sex: Female

DRUGS (24)
  1. FULVESTRANT [Suspect]
     Active Substance: FULVESTRANT
     Indication: Oestrogen receptor assay positive
     Route: 065
  2. FULVESTRANT [Suspect]
     Active Substance: FULVESTRANT
     Indication: Progesterone receptor assay positive
  3. FULVESTRANT [Suspect]
     Active Substance: FULVESTRANT
     Indication: HER2 negative breast cancer
  4. PALBOCICLIB [Suspect]
     Active Substance: PALBOCICLIB
     Indication: Oestrogen receptor assay positive
     Dosage: 150 MILLIGRAM, TWO TIMES A DAY
     Route: 048
  5. PALBOCICLIB [Suspect]
     Active Substance: PALBOCICLIB
     Indication: Progesterone receptor assay positive
  6. PALBOCICLIB [Suspect]
     Active Substance: PALBOCICLIB
     Indication: HER2 negative breast cancer
  7. CRIZOTINIB [Concomitant]
     Active Substance: CRIZOTINIB
     Indication: Oestrogen receptor assay positive
     Dosage: 250 MILLIGRAM, TWO TIMES A DAY
     Route: 065
  8. CRIZOTINIB [Concomitant]
     Active Substance: CRIZOTINIB
     Indication: Progesterone receptor assay positive
  9. CRIZOTINIB [Concomitant]
     Active Substance: CRIZOTINIB
     Indication: Human epidermal growth factor receptor negative
  10. CABOZANTINIB [Concomitant]
     Active Substance: CABOZANTINIB
     Indication: Oestrogen receptor assay positive
     Route: 065
  11. CABOZANTINIB [Concomitant]
     Active Substance: CABOZANTINIB
     Indication: Progesterone receptor assay positive
     Route: 065
  12. CABOZANTINIB [Concomitant]
     Active Substance: CABOZANTINIB
     Indication: Human epidermal growth factor receptor negative
     Route: 065
  13. CERITINIB [Concomitant]
     Active Substance: CERITINIB
     Indication: Oestrogen receptor assay positive
     Route: 065
  14. CERITINIB [Concomitant]
     Active Substance: CERITINIB
     Indication: Progesterone receptor assay positive
  15. CERITINIB [Concomitant]
     Active Substance: CERITINIB
     Indication: Human epidermal growth factor receptor negative
  16. DOXORUBICIN [Concomitant]
     Active Substance: DOXORUBICIN
     Indication: Oestrogen receptor assay positive
     Route: 042
  17. DOXORUBICIN [Concomitant]
     Active Substance: DOXORUBICIN
     Indication: Progesterone receptor assay positive
  18. DOXORUBICIN [Concomitant]
     Active Substance: DOXORUBICIN
     Indication: Human epidermal growth factor receptor negative
  19. PACLITAXEL [Concomitant]
     Active Substance: PACLITAXEL
     Indication: Oestrogen receptor assay positive
     Dosage: 80 MILLIGRAM PER MILLILETER, EVERY WEEK
     Route: 065
  20. PACLITAXEL [Concomitant]
     Active Substance: PACLITAXEL
     Indication: Progesterone receptor assay positive
  21. PACLITAXEL [Concomitant]
     Active Substance: PACLITAXEL
     Indication: Human epidermal growth factor receptor negative
  22. ABEMACICLIB [Concomitant]
     Active Substance: ABEMACICLIB
     Indication: Oestrogen receptor assay positive
     Dosage: 150 MILLIGRAM, TWO TIMES A DAY
     Route: 048
  23. ABEMACICLIB [Concomitant]
     Active Substance: ABEMACICLIB
     Indication: Progesterone receptor assay positive
  24. ABEMACICLIB [Concomitant]
     Active Substance: ABEMACICLIB
     Indication: Human epidermal growth factor receptor negative

REACTIONS (1)
  - Drug ineffective [Unknown]
